FAERS Safety Report 10441823 (Version 2)
Quarter: 2014Q4

REPORT INFORMATION
  Report Type: Spontaneous
  Country: US (occurrence: US)
  Receive Date: 20140908
  Receipt Date: 20141013
  Transmission Date: 20150528
  Serious: Yes (Hospitalization, Other)
  Sender: FDA-Public Use
  Company Number: US-ACTELION-A-US2014-104641

PATIENT
  Age: 57 Year
  Sex: Female

DRUGS (3)
  1. VELETRI [Suspect]
     Active Substance: EPOPROSTENOL
     Indication: COR PULMONALE CHRONIC
     Dosage: 74 NG/KG, PER MIN
     Route: 042
     Dates: start: 20121119
  2. VELETRI [Suspect]
     Active Substance: EPOPROSTENOL
     Dosage: 75 NG/KG, PER MIN
     Route: 041
  3. COUMADIN [Concomitant]
     Active Substance: WARFARIN SODIUM

REACTIONS (5)
  - Pyrexia [Unknown]
  - Breast cancer [Unknown]
  - Mastectomy [Unknown]
  - Anaemia [Unknown]
  - Transfusion [Unknown]
